FAERS Safety Report 6558804-5 (Version None)
Quarter: 2010Q1

REPORT INFORMATION
  Report Type: 
  Country: None (occurrence: None)
  Receive Date: 20100129
  Receipt Date: 20100120
  Transmission Date: 20100710
  Serious: Yes (Other)
  Sender: FDA-Public Use
  Company Number: PHHY2010US03298

PATIENT

DRUGS (2)
  1. EXELON [Suspect]
     Dosage: 4.6 MG, UNK
  2. EXELON [Suspect]
     Dosage: 9.5 MG, UNK

REACTIONS (2)
  - HALLUCINATION [None]
  - NIGHTMARE [None]
